FAERS Safety Report 16730903 (Version 2)
Quarter: 2019Q3

REPORT INFORMATION
  Report Type: Spontaneous
  Country: US (occurrence: US)
  Receive Date: 20190822
  Receipt Date: 20190824
  Transmission Date: 20191005
  Serious: Yes (Death, Hospitalization)
  Sender: FDA-Public Use
  Company Number: PHEH2019US034833

PATIENT
  Age: 96 Year
  Sex: Female

DRUGS (1)
  1. ENTRESTO [Suspect]
     Active Substance: SACUBITRIL\VALSARTAN
     Indication: CARDIAC FAILURE
     Dosage: UNK, BID (LOW DOSE)
     Route: 048

REACTIONS (3)
  - Aortic stenosis [Fatal]
  - Cardiac failure [Fatal]
  - Drug ineffective [Unknown]
